FAERS Safety Report 5513030-3 (Version None)
Quarter: 2007Q4

REPORT INFORMATION
  Report Type: 
  Country: None (occurrence: None)
  Receive Date: 20071112
  Receipt Date: 20071030
  Transmission Date: 20080405
  Serious: Yes (Death, Hospitalization)
  Sender: FDA-Public Use
  Company Number: CA-ROCHE-527575

PATIENT
  Age: 73 Year
  Sex: Male
  Weight: 75 kg

DRUGS (9)
  1. CAPECITABINE [Suspect]
     Dosage: DOSING REGIMEN REPORTED AS 2500MG AM AND 2000G MS DOSAGE FORM REPORTED AS 2500MG/M2.
     Route: 048
     Dates: start: 20070926, end: 20071028
  2. BEVACIZUMAB [Suspect]
     Dosage: DOSAGE FORM: 5MG/KG
     Route: 042
     Dates: start: 20070926, end: 20071028
  3. OXALIPLATIN [Suspect]
     Dosage: DOSAGE FORM: 100MG/KG
     Route: 042
     Dates: start: 20070926, end: 20071028
  4. MAGIC MOUTHWASH NOS [Concomitant]
     Dates: start: 20021009
  5. RAMIPRIL [Concomitant]
     Dates: start: 19980101, end: 20071022
  6. METFORMIN HCL [Concomitant]
     Dosage: REPORTED AS 250.
     Dates: start: 19980101, end: 20071022
  7. LIPITOR [Concomitant]
     Dates: start: 19980101, end: 20071022
  8. ASAPHEN [Concomitant]
     Dates: start: 19980101, end: 20071022
  9. CHLORPROMAZINE [Concomitant]
     Dates: start: 20021009, end: 20071022

REACTIONS (1)
  - SEPTIC SHOCK [None]
